FAERS Safety Report 7679882 (Version 2)
Quarter: 2013Q4

REPORT INFORMATION
  Report Type: Spontaneous
  Country: US (occurrence: None)
  Receive Date: 20101028
  Receipt Date: 20131008
  Transmission Date: 20140711
  Serious: Yes (Hospitalization, Other)
  Sender: FDA-Public Use
  Company Number: 2010US004354

PATIENT
  Age: 36 Year
  Sex: Male
  Weight: 90 kg

DRUGS (7)
  1. PROGRAF [Suspect]
     Indication: RENAL TRANSPLANT
     Dosage: 0.5 MG, BID, ORAL
     Route: 048
     Dates: start: 20020624
  2. RANEXA (RANOLANZINE) TABLET, 500 MG [Concomitant]
  3. CELLCEPT /01275102/ [Concomitant]
  4. PREDNISONE (PREDNISONE) TABLET, 500 MG [Concomitant]
  5. LISINOPRIL (LISINOPRIL) [Concomitant]
  6. PLAVIX (CLOPIDOGREL BISULFATE) (CLOPIDOGREL BISULFATE) [Concomitant]
  7. ASPIRIN (ACETYLSALICYLIC ACID) TABLET [Concomitant]

REACTIONS (3)
  - Vascular graft [None]
  - Cardiac disorder [None]
  - Myocardial infarction [None]
